FAERS Safety Report 5579853-X (Version None)
Quarter: 2007Q4

REPORT INFORMATION
  Report Type: 
  Country: None (occurrence: None)
  Receive Date: 20071130
  Receipt Date: 20070626
  Transmission Date: 20080405
  Serious: No
  Sender: FDA-Public Use
  Company Number: US200707004480

PATIENT
  Age: 66 Year
  Sex: Female
  Weight: 82.1 kg

DRUGS (5)
  1. BYETTA [Suspect]
     Indication: TYPE 2 DIABETES MELLITUS
     Dosage: 5 UG, 2/D, SUBCUTANEOUS ; 10 UG, 2/D, SUBCUTANEOUS
     Route: 058
     Dates: start: 20061001, end: 20070201
  2. BYETTA [Suspect]
     Indication: TYPE 2 DIABETES MELLITUS
     Dosage: 5 UG, 2/D, SUBCUTANEOUS ; 10 UG, 2/D, SUBCUTANEOUS
     Route: 058
     Dates: start: 20070202
  3. METFORMIN HCL [Concomitant]
  4. ACTOS /USA/ (PIOGLITAZONE HYDROCHLORIDE) [Concomitant]
  5. GLIPIZIDE [Concomitant]

REACTIONS (10)
  - ANXIETY [None]
  - BLOOD GLUCOSE DECREASED [None]
  - EAR INFECTION [None]
  - FATIGUE [None]
  - INJECTION SITE PAIN [None]
  - NAUSEA [None]
  - SINUSITIS [None]
  - STOMACH DISCOMFORT [None]
  - STRESS [None]
  - WEIGHT DECREASED [None]
